FAERS Safety Report 10796097 (Version 5)
Quarter: 2015Q1

REPORT INFORMATION
  Report Type: Spontaneous
  Country: CY (occurrence: CY)
  Receive Date: 20150216
  Receipt Date: 20150313
  Transmission Date: 20150721
  Serious: Yes (Other)
  Sender: FDA-Public Use
  Company Number: CY-BIOGENIDEC-2015BI015321

PATIENT
  Age: 45 Year
  Sex: Male

DRUGS (2)
  1. TYSABRI [Suspect]
     Active Substance: NATALIZUMAB
     Indication: MULTIPLE SCLEROSIS
     Route: 042
     Dates: start: 200912, end: 20150114
  2. FAMPYRA [Concomitant]
     Active Substance: DALFAMPRIDINE
     Indication: GAIT DISTURBANCE

REACTIONS (1)
  - Spinal operation [Unknown]
